FAERS Safety Report 10537592 (Version 2)
Quarter: 2014Q4

REPORT INFORMATION
  Report Type: Report from Study
  Country: NL (occurrence: NL)
  Receive Date: 20141023
  Receipt Date: 20141113
  Transmission Date: 20150529
  Serious: Yes (Hospitalization, Other)
  Sender: FDA-Public Use
  Company Number: NL-AMGEN-NLDSL2014081325

PATIENT
  Age: 62 Year
  Sex: Female

DRUGS (2)
  1. NEULASTA [Suspect]
     Active Substance: PEGFILGRASTIM
     Dosage: UNK
     Route: 065
  2. NEULASTA [Suspect]
     Active Substance: PEGFILGRASTIM
     Indication: PRODUCT USED FOR UNKNOWN INDICATION
     Dosage: 6 MG, Q3W
     Route: 058
     Dates: start: 20140905, end: 20141107

REACTIONS (7)
  - Bone pain [Unknown]
  - Fatigue [Unknown]
  - Cystitis [Unknown]
  - Myalgia [Unknown]
  - Decreased appetite [Unknown]
  - Pyrexia [Unknown]
  - Fungal infection [Unknown]

NARRATIVE: CASE EVENT DATE: 20140927
